FAERS Safety Report 15884024 (Version 1)
Quarter: 2019Q1

REPORT INFORMATION
  Report Type: Spontaneous
  Country: US (occurrence: US)
  Receive Date: 20190129
  Receipt Date: 20190129
  Transmission Date: 20190417
  Serious: No
  Sender: FDA-Public Use
  Company Number: US-BAYER-2019-020929

PATIENT
  Sex: Male

DRUGS (1)
  1. MIRALAX [Suspect]
     Active Substance: POLYETHYLENE GLYCOL 3350
     Dosage: HAS BEEN TAKING THE PRODUCT FOR ^ABOUT 2-3 YEARS
     Route: 065

REACTIONS (2)
  - Incorrect dose administered [Unknown]
  - Diarrhoea [Unknown]
